FAERS Safety Report 6681398-0 (Version None)
Quarter: 2010Q2

REPORT INFORMATION
  Report Type: 
  Country: None (occurrence: None)
  Receive Date: 20100414
  Receipt Date: 20100406
  Transmission Date: 20101027
  Serious: Yes (Hospitalization)
  Sender: FDA-Public Use
  Company Number: B0640515A

PATIENT
  Age: 2 Year
  Sex: Male
  Weight: 12.5 kg

DRUGS (1)
  1. VENTOLIN [Suspect]
     Dosage: 15ML PER DAY
     Route: 048
     Dates: start: 20010708, end: 20010708

REACTIONS (9)
  - ACCIDENTAL EXPOSURE [None]
  - GLUCOSE URINE PRESENT [None]
  - HYPERGLYCAEMIA [None]
  - HYPERTENSION [None]
  - HYPOKALAEMIA [None]
  - SUPRAVENTRICULAR TACHYCARDIA [None]
  - TACHYPNOEA [None]
  - TREMOR [None]
  - WHITE BLOOD CELL COUNT INCREASED [None]
